FAERS Safety Report 7379704-7 (Version None)
Quarter: 2011Q1

REPORT INFORMATION
  Report Type: 
  Country: None (occurrence: None)
  Receive Date: 20110329
  Receipt Date: 20110325
  Transmission Date: 20110831
  Serious: No
  Sender: FDA-Public Use
  Company Number: US-PFIZER INC-2011067412

PATIENT
  Sex: Female

DRUGS (1)
  1. LYRICA [Suspect]
     Dosage: 50 MG, 1X/DAY
     Dates: start: 20110324, end: 20110324

REACTIONS (3)
  - DIZZINESS [None]
  - TREMOR [None]
  - CONFUSIONAL STATE [None]
